FAERS Safety Report 5763695-6 (Version None)
Quarter: 2008Q2

REPORT INFORMATION
  Report Type: 
  Country: None (occurrence: None)
  Receive Date: 20080610
  Receipt Date: 20080528
  Transmission Date: 20081010
  Serious: Yes (Life-Threatening, Hospitalization)
  Sender: FDA-Public Use
  Company Number: FR-BRISTOL-MYERS SQUIBB COMPANY-14216261

PATIENT
  Age: 17 Year
  Sex: Female

DRUGS (8)
  1. ENDOXAN [Suspect]
     Dosage: 1 DOSAGE FORM = 0.6 G/M*2
     Route: 042
     Dates: start: 20080314, end: 20080414
  2. ENBREL [Concomitant]
     Dates: start: 20070101
  3. PERINDOPRIL ERBUMINE [Concomitant]
  4. ELISOR [Concomitant]
  5. LOXEN [Concomitant]
  6. PRIMPERAN TAB [Concomitant]
  7. SPASFON [Concomitant]
  8. ACETAMINOPHEN [Concomitant]

REACTIONS (4)
  - CARDIAC FAILURE [None]
  - CONDITION AGGRAVATED [None]
  - CYTOLYTIC HEPATITIS [None]
  - MYOPERICARDITIS [None]
